FAERS Safety Report 5627214-7 (Version None)
Quarter: 2008Q1

REPORT INFORMATION
  Report Type: 
  Country: None (occurrence: None)
  Receive Date: 20080212
  Receipt Date: 20080212
  Transmission Date: 20080703
  Serious: Yes (Other)
  Sender: FDA-Public Use
  Company Number: None

PATIENT
  Sex: Female
  Weight: 72.5755 kg

DRUGS (1)
  1. RECLAST [Suspect]
     Indication: RESORPTION BONE INCREASED
     Dosage: ONLY 1 TIME IV
     Route: 042
     Dates: start: 20071128, end: 20071128

REACTIONS (5)
  - ARTHRALGIA [None]
  - BONE PAIN [None]
  - CHILLS [None]
  - GAIT DISTURBANCE [None]
  - MYALGIA [None]
